FAERS Safety Report 10173458 (Version 1)
Quarter: 2014Q2

REPORT INFORMATION
  Report Type: Spontaneous
  Country: US (occurrence: None)
  Receive Date: 20140415
  Receipt Date: 20140415
  Transmission Date: 20141212
  Serious: Yes (Other)
  Sender: FDA-Public Use
  Company Number: ALL1-2013-08770

PATIENT
  Age: 30 Year
  Sex: 0

DRUGS (1)
  1. LIALDA [Suspect]
     Indication: CROHN^S DISEASE
     Dosage: 3.6 MG (THREE 1.2 G TABLETS)
     Route: 048
     Dates: start: 20131207

REACTIONS (2)
  - Hypersensitivity [None]
  - Off label use [None]
